FAERS Safety Report 22073604 (Version 1)
Quarter: 2023Q1

REPORT INFORMATION
  Report Type: Spontaneous
  Country: US (occurrence: None)
  Receive Date: 20230307
  Receipt Date: 20230307
  Transmission Date: 20230418
  Serious: No
  Sender: FDA-Public Use
  Company Number: None

PATIENT
  Age: 78 Year
  Sex: Male
  Weight: 62.23 kg

DRUGS (7)
  1. CAPECITABINE [Suspect]
     Active Substance: CAPECITABINE
     Indication: Oesophageal carcinoma
     Dosage: FREQUENCY : TWICE A DAY;?
     Route: 048
  2. ATORVASTATIN [Concomitant]
  3. CARVEDILOL [Concomitant]
     Active Substance: CARVEDILOL
  4. LIDOCAINE-PRILOCAINE [Concomitant]
  5. OPDIVO [Concomitant]
     Active Substance: NIVOLUMAB
  6. OXYCODONE [Concomitant]
  7. WARFARIN [Concomitant]

REACTIONS (2)
  - Drug ineffective [None]
  - Therapy cessation [None]
